FAERS Safety Report 4728764-8 (Version None)
Quarter: 2005Q3

REPORT INFORMATION
  Report Type: 
  Country: None (occurrence: None)
  Receive Date: 20050729
  Receipt Date: 20050720
  Transmission Date: 20060218
  Serious: Yes (Hospitalization)
  Sender: FDA-Public Use
  Company Number: JP-GLAXOSMITHKLINE-B0388432A

PATIENT
  Sex: Male

DRUGS (18)
  1. EPIVIR [Suspect]
     Indication: HIV INFECTION
     Dosage: 300MG PER DAY
     Route: 048
     Dates: start: 20040417, end: 20040614
  2. EPIVIR [Suspect]
     Dosage: 300MG PER DAY
     Route: 048
     Dates: start: 20040708, end: 20040812
  3. COMBIVIR [Suspect]
     Indication: HIV INFECTION
     Dosage: 2U PER DAY
     Route: 048
     Dates: start: 20040304, end: 20040416
  4. ZIAGEN [Suspect]
     Indication: HIV INFECTION
     Dosage: 600MG PER DAY
     Route: 048
     Dates: start: 20040421, end: 20040614
  5. VIDEX EC [Suspect]
     Indication: HIV INFECTION
     Dosage: 400MG PER DAY
     Route: 048
     Dates: start: 20041206
  6. ZERIT [Suspect]
     Indication: HIV INFECTION
     Dosage: 60MG PER DAY
     Route: 048
     Dates: start: 20040417, end: 20040420
  7. NORVIR [Suspect]
     Indication: HIV INFECTION
     Dosage: 100MG PER DAY
     Route: 048
     Dates: start: 20041224
  8. STOCRIN [Suspect]
     Indication: HIV INFECTION
     Dosage: 600MG PER DAY
     Route: 048
     Dates: start: 20040304, end: 20040614
  9. STOCRIN [Suspect]
     Dosage: 600MG PER DAY
     Route: 048
     Dates: start: 20040708, end: 20040812
  10. REYATAZ [Suspect]
     Indication: HIV INFECTION
     Dosage: 400MG PER DAY
     Route: 048
     Dates: start: 20041206
  11. VIREAD [Suspect]
     Indication: HIV INFECTION
     Dosage: 300MG PER DAY
     Route: 048
     Dates: start: 20040708, end: 20040812
  12. VIREAD [Suspect]
     Dosage: 300MG PER DAY
     Route: 048
     Dates: start: 20041206
  13. LOXONIN [Concomitant]
     Indication: PAIN
     Route: 048
     Dates: start: 20040401
  14. URSODIOL [Concomitant]
     Indication: BLOOD ALKALINE PHOSPHATASE INCREASED
     Dosage: 200MG THREE TIMES PER DAY
     Route: 048
     Dates: start: 20040401, end: 20040406
  15. LENDORMIN [Concomitant]
     Indication: INSOMNIA
     Route: 048
     Dates: start: 20040401
  16. TRYPTANOL [Concomitant]
     Indication: INSOMNIA
     Dosage: 10MG THREE TIMES PER DAY
     Route: 048
     Dates: start: 20040401, end: 20040420
  17. AMOBAN [Concomitant]
     Indication: INSOMNIA
     Route: 048
     Dates: start: 20040715, end: 20050331
  18. INTEBAN SP [Concomitant]
     Indication: PAIN
     Route: 048
     Dates: start: 20040902

REACTIONS (1)
  - HYPOAESTHESIA [None]
